FAERS Safety Report 8858993 (Version 1)
Quarter: 2012Q4

REPORT INFORMATION
  Report Type: 
  Country: MX (occurrence: MX)
  Receive Date: 20121024
  Receipt Date: 20121024
  Transmission Date: 20130627
  Serious: Yes (Other)
  Sender: FDA-Public Use
  Company Number: PHHY2012MX094971

PATIENT
  Age: 47 Year
  Sex: Male

DRUGS (4)
  1. CO-DIOVAN [Suspect]
     Indication: HYPERTENSION
     Dosage: 2 tablet (80/12.5mg) daily
     Dates: start: 200110
  2. METOPROLOL [Concomitant]
     Indication: CARDIAC DISORDER
     Dosage: 1 DF daily
     Dates: start: 200208
  3. ASPIRIN PROTECT [Concomitant]
     Indication: CARDIAC DISORDER
     Dosage: UNK
     Dates: start: 201109
  4. BUSCAPINE [Concomitant]
     Indication: GASTRITIS
     Dosage: UNK

REACTIONS (4)
  - Cardiac disorder [Unknown]
  - Overweight [Unknown]
  - Hepatic steatosis [Unknown]
  - Gastritis [Unknown]
